FAERS Safety Report 14006981 (Version 1)
Quarter: 2017Q3

REPORT INFORMATION
  Report Type: Spontaneous
  Country: US (occurrence: US)
  Receive Date: 20170922
  Receipt Date: 20170922
  Transmission Date: 20171128
  Serious: Yes (Disabling)
  Sender: FDA-Public Use
  Company Number: None

PATIENT
  Sex: Female
  Weight: 43.65 kg

DRUGS (4)
  1. ZYRTEC LIQUID [Concomitant]
  2. GINGER AID TEA [Concomitant]
  3. CULTURELLE PROBIOTICS [Concomitant]
  4. POLYETHYLENE GLYCOL [Suspect]
     Active Substance: POLYETHYLENE GLYCOLS
     Indication: IRRITABLE BOWEL SYNDROME
     Dosage: QUANTITY:17 POWDER;?
     Route: 048
     Dates: start: 20170718, end: 20170919

REACTIONS (6)
  - Anxiety [None]
  - Visual impairment [None]
  - Paranoia [None]
  - Hallucination [None]
  - Loss of consciousness [None]
  - Fear [None]

NARRATIVE: CASE EVENT DATE: 20170919
